FAERS Safety Report 18348276 (Version 2)
Quarter: 2020Q4

REPORT INFORMATION
  Report Type: Spontaneous
  Country: US (occurrence: US)
  Receive Date: 20201006
  Receipt Date: 20201102
  Transmission Date: 20210114
  Serious: Yes (Hospitalization, Other)
  Sender: FDA-Public Use
  Company Number: US-ASTRAZENECA-2020SF27402

PATIENT
  Age: 15509 Day
  Sex: Male
  Weight: 140.7 kg

DRUGS (70)
  1. FARXIGA [Suspect]
     Active Substance: DAPAGLIFLOZIN PROPANEDIOL
     Indication: WEIGHT DECREASED
     Route: 048
  2. FARXIGA [Suspect]
     Active Substance: DAPAGLIFLOZIN PROPANEDIOL
     Indication: BLOOD PRESSURE DECREASED
     Route: 048
  3. TYLENOL WITH CODEINE [Concomitant]
     Active Substance: ACETAMINOPHEN\CODEINE PHOSPHATE
  4. CANDIDA [Concomitant]
     Active Substance: CANDIDA ALBICANS
  5. GLYCERIN. [Concomitant]
     Active Substance: GLYCERIN
  6. PROAIR HFA [Concomitant]
     Active Substance: ALBUTEROL SULFATE
  7. LACTATED RINGERS SOLUTION [Concomitant]
     Active Substance: CALCIUM CHLORIDE\POTASSIUM CHLORIDE\SODIUM CHLORIDE\SODIUM LACTATE
  8. AUGMENTIN [Concomitant]
     Active Substance: AMOXICILLIN\CLAVULANATE POTASSIUM
  9. SENSORCAINE-EPINEPHRINE [Concomitant]
  10. CELEBREX [Concomitant]
     Active Substance: CELECOXIB
  11. SENOKOT [Concomitant]
     Active Substance: SENNOSIDES
  12. ULTRAM [Concomitant]
     Active Substance: TRAMADOL HYDROCHLORIDE
  13. FARXIGA [Suspect]
     Active Substance: DAPAGLIFLOZIN PROPANEDIOL
     Indication: WEIGHT DECREASED
     Route: 048
     Dates: start: 201502, end: 201812
  14. HYDROCHLOROTHIAZIDE-LISINOPRIL [Concomitant]
     Active Substance: HYDROCHLOROTHIAZIDE\LISINOPRIL
  15. ROCEPHIN [Concomitant]
     Active Substance: CEFTRIAXONE SODIUM
  16. ZOFRAN [Concomitant]
     Active Substance: ONDANSETRON HYDROCHLORIDE
  17. SODIUM CHLORIDE. [Concomitant]
     Active Substance: SODIUM CHLORIDE
  18. BICITRA [Concomitant]
     Active Substance: CITRIC ACID, 1-STEARYL ESTER\SODIUM CITRATE
  19. ROXICODONE [Concomitant]
     Active Substance: OXYCODONE HYDROCHLORIDE
  20. PHENERGAN [Concomitant]
     Active Substance: PROMETHAZINE HYDROCHLORIDE
  21. NAPROXEN. [Concomitant]
     Active Substance: NAPROXEN
  22. CLOBETASOL PROPIONATE. [Concomitant]
     Active Substance: CLOBETASOL PROPIONATE
  23. ASPIRIN. [Concomitant]
     Active Substance: ASPIRIN
  24. SYRINGE [Concomitant]
     Active Substance: DEVICE
  25. LANCETS [Concomitant]
     Active Substance: DEVICE
  26. QVAR [Concomitant]
     Active Substance: BECLOMETHASONE DIPROPIONATE
  27. MARCAINE [Concomitant]
     Active Substance: BUPIVACAINE HYDROCHLORIDE
  28. LOVENOX [Concomitant]
     Active Substance: ENOXAPARIN SODIUM
  29. REGLAN [Concomitant]
     Active Substance: METOCLOPRAMIDE HYDROCHLORIDE
  30. MULTIVITAMINS [Concomitant]
     Active Substance: VITAMINS
  31. TRULICITY [Concomitant]
     Active Substance: DULAGLUTIDE
  32. LIPITOR [Concomitant]
     Active Substance: ATORVASTATIN CALCIUM
  33. DILAUDID [Concomitant]
     Active Substance: HYDROMORPHONE HYDROCHLORIDE
  34. DEMEROL [Concomitant]
     Active Substance: MEPERIDINE HYDROCHLORIDE
  35. EPINEPHRINE. [Concomitant]
     Active Substance: EPINEPHRINE
  36. MIDAZOLAM. [Concomitant]
     Active Substance: MIDAZOLAM
  37. NAROPIN [Concomitant]
     Active Substance: ROPIVACAINE HYDROCHLORIDE
  38. FARXIGA [Suspect]
     Active Substance: DAPAGLIFLOZIN PROPANEDIOL
     Indication: BLOOD PRESSURE DECREASED
     Route: 048
     Dates: start: 201502, end: 201812
  39. FARXIGA [Suspect]
     Active Substance: DAPAGLIFLOZIN PROPANEDIOL
     Indication: TYPE 2 DIABETES MELLITUS
     Route: 048
  40. HYDROCHLOROTHIAZIDE. [Concomitant]
     Active Substance: HYDROCHLOROTHIAZIDE
  41. MOMETASONE FUROATE. [Concomitant]
     Active Substance: MOMETASONE FUROATE
  42. TESTOSTERONE CYPIONATE. [Concomitant]
     Active Substance: TESTOSTERONE CYPIONATE
  43. CLEOCIN [Concomitant]
     Active Substance: CLINDAMYCIN PHOSPHATE
  44. COLACE [Concomitant]
     Active Substance: DOCUSATE SODIUM
  45. TORADOL [Concomitant]
     Active Substance: KETOROLAC TROMETHAMINE
  46. MORPHINE [Concomitant]
     Active Substance: MORPHINE
  47. METFORMIN [Concomitant]
     Active Substance: METFORMIN HYDROCHLORIDE
  48. ANDROGEL [Concomitant]
     Active Substance: TESTOSTERONE
  49. BACTRIM [Concomitant]
     Active Substance: SULFAMETHOXAZOLE\TRIMETHOPRIM
  50. PREDNISONE. [Concomitant]
     Active Substance: PREDNISONE
  51. TYLENOL [Concomitant]
     Active Substance: ACETAMINOPHEN
  52. GLYXAMBI [Concomitant]
     Active Substance: EMPAGLIFLOZIN\LINAGLIPTIN
  53. VICKS NYQUIL [Concomitant]
     Active Substance: ACETAMINOPHEN\DEXTROMETHORPHAN HYDROBROMIDE\DOXYLAMINE SUCCINATE
  54. ALKA-SELTZER [Concomitant]
     Active Substance: ANHYDROUS CITRIC ACID\ASPIRIN\SODIUM BICARBONATE
  55. ZOSYN [Concomitant]
     Active Substance: PIPERACILLIN SODIUM\TAZOBACTAM SODIUM
  56. IBUPROFEN. [Concomitant]
     Active Substance: IBUPROFEN
  57. DECADRON [Concomitant]
     Active Substance: DEXAMETHASONE
  58. FOLIC ACID. [Concomitant]
     Active Substance: FOLIC ACID
  59. LYRICA [Concomitant]
     Active Substance: PREGABALIN
  60. FARXIGA [Suspect]
     Active Substance: DAPAGLIFLOZIN PROPANEDIOL
     Indication: TYPE 2 DIABETES MELLITUS
     Route: 048
     Dates: start: 201502, end: 201812
  61. GLIMEPIRIDE. [Concomitant]
     Active Substance: GLIMEPIRIDE
  62. LACTIC ACID. [Concomitant]
     Active Substance: LACTIC ACID
  63. FENTANYL. [Concomitant]
     Active Substance: FENTANYL
  64. IOPAMIDOL [Concomitant]
     Active Substance: IOPAMIDOL
  65. MAGNESIUM HYDROXIDE. [Concomitant]
     Active Substance: MAGNESIUM HYDROXIDE
  66. PEPPERMINT. [Concomitant]
     Active Substance: PEPPERMINT
  67. VANCOCIN [Concomitant]
     Active Substance: VANCOMYCIN HYDROCHLORIDE
  68. HYDROMORPHONE [Concomitant]
     Active Substance: HYDROMORPHONE
  69. D50W [Concomitant]
  70. HUMALOG [Concomitant]
     Active Substance: INSULIN LISPRO

REACTIONS (7)
  - Necrotising soft tissue infection [Unknown]
  - Scrotal abscess [Unknown]
  - Perirectal abscess [Unknown]
  - Anal abscess [Unknown]
  - Fournier^s gangrene [Unknown]
  - Sepsis [Unknown]
  - Abscess limb [Unknown]

NARRATIVE: CASE EVENT DATE: 20181230
